FAERS Safety Report 23750321 (Version 5)
Quarter: 2025Q3

REPORT INFORMATION
  Report Type: Spontaneous
  Country: CA (occurrence: CA)
  Receive Date: 20240417
  Receipt Date: 20250920
  Transmission Date: 20251021
  Serious: Yes (Hospitalization, Other)
  Sender: CELLTRION
  Company Number: CA-CELLTRION INC.-2024CA008879

PATIENT

DRUGS (4)
  1. YUFLYMA [Suspect]
     Active Substance: ADALIMUMAB-AATY
     Indication: Colitis ulcerative
     Dosage: 40 MG, Q2WEEKS
     Route: 058
     Dates: start: 20240312
  2. YUFLYMA [Suspect]
     Active Substance: ADALIMUMAB-AATY
  3. SERTRALINE [Concomitant]
     Active Substance: SERTRALINE HYDROCHLORIDE
  4. VYVANSE [Concomitant]
     Active Substance: LISDEXAMFETAMINE DIMESYLATE

REACTIONS (3)
  - Colitis ulcerative [Not Recovered/Not Resolved]
  - Product supply issue [Not Recovered/Not Resolved]
  - Therapy interrupted [Not Recovered/Not Resolved]
